FAERS Safety Report 16665935 (Version 1)
Quarter: 2019Q3

REPORT INFORMATION
  Report Type: Report from Study
  Country: None (occurrence: BR)
  Receive Date: 20190804
  Receipt Date: 20190804
  Transmission Date: 20191004
  Serious: Yes (Other)
  Sender: FDA-Public Use
  Company Number: BR-ABBVIE-18K-020-2286562-00

PATIENT
  Sex: Female
  Weight: 59 kg

DRUGS (1)
  1. HUMIRA [Suspect]
     Active Substance: ADALIMUMAB
     Indication: ANKYLOSING SPONDYLITIS
     Route: 030
     Dates: start: 20120118, end: 20180203

REACTIONS (5)
  - Gestational hypertension [Recovered/Resolved]
  - Live birth [Unknown]
  - Incorrect route of product administration [Unknown]
  - Exposure during pregnancy [Unknown]
  - Arthralgia [Recovering/Resolving]
